FAERS Safety Report 20554808 (Version 9)
Quarter: 2022Q3

REPORT INFORMATION
  Report Type: Spontaneous
  Country: US (occurrence: US)
  Receive Date: 20220304
  Receipt Date: 20220802
  Transmission Date: 20221026
  Serious: Yes (Hospitalization, Other)
  Sender: FDA-Public Use
  Company Number: US-PFIZER INC-2016206251

PATIENT
  Age: 50 Year
  Sex: Female

DRUGS (1)
  1. PREMARIN [Suspect]
     Active Substance: ESTROGENS, CONJUGATED
     Indication: Menopause
     Dosage: 1.25 MG, UNK
     Dates: start: 2001

REACTIONS (7)
  - Illness [Unknown]
  - Constipation [Unknown]
  - Intentional product misuse [Unknown]
  - Abdominal pain [Unknown]
  - Anxiety [Unknown]
  - Depression [Unknown]
  - Withdrawal syndrome [Unknown]

NARRATIVE: CASE EVENT DATE: 20200101
